FAERS Safety Report 15578083 (Version 1)
Quarter: 2018Q4

REPORT INFORMATION
  Report Type: Spontaneous
  Country: FR (occurrence: FR)
  Receive Date: 20181102
  Receipt Date: 20181102
  Transmission Date: 20190205
  Serious: Yes (Hospitalization)
  Sender: FDA-Public Use
  Company Number: PHHY2018FR143619

PATIENT
  Age: 48 Year
  Sex: Female

DRUGS (8)
  1. XELODA [Suspect]
     Active Substance: CAPECITABINE
     Indication: BREAST CANCER
     Dosage: 2960 MG, QD
     Route: 048
     Dates: start: 20120207, end: 20120212
  2. MEDROL [Concomitant]
     Active Substance: METHYLPREDNISOLONE
     Dosage: 48 MG, CYCLIC
     Route: 048
     Dates: start: 20120207, end: 20120207
  3. TAXOTERE [Suspect]
     Active Substance: DOCETAXEL
     Dosage: 111 MG, CYCLIC
     Route: 042
     Dates: start: 20120228, end: 20120228
  4. LOVENOX [Concomitant]
     Active Substance: ENOXAPARIN SODIUM
     Indication: PRODUCT USED FOR UNKNOWN INDICATION
     Dosage: 4000 IU, QD
     Route: 058
  5. ZOMETA [Suspect]
     Active Substance: ZOLEDRONIC ACID
     Indication: HYPERCALCAEMIA
     Dosage: 4 MG, CYCLIC
     Route: 042
     Dates: start: 20120207, end: 20120207
  6. XELODA [Suspect]
     Active Substance: CAPECITABINE
     Dosage: 2 MG/M2, QD
     Route: 048
     Dates: start: 201205
  7. TAXOTERE [Suspect]
     Active Substance: DOCETAXEL
     Indication: BREAST CANCER
     Dosage: 111 MG, CYCLIC
     Route: 042
     Dates: start: 20120207, end: 20120207
  8. MEDROL [Concomitant]
     Active Substance: METHYLPREDNISOLONE
     Indication: PREMEDICATION
     Dosage: 48 MG, CYCLIC
     Route: 048
     Dates: start: 20120228, end: 20120228

REACTIONS (1)
  - Palmar-plantar erythrodysaesthesia syndrome [Recovered/Resolved]

NARRATIVE: CASE EVENT DATE: 20120207
